FAERS Safety Report 10466822 (Version 2)
Quarter: 2014Q4

REPORT INFORMATION
  Report Type: Spontaneous
  Country: US (occurrence: US)
  Receive Date: 20140922
  Receipt Date: 20141027
  Transmission Date: 20150528
  Serious: No
  Sender: FDA-Public Use
  Company Number: US-PFIZER INC-2014258490

PATIENT
  Age: 66 Year
  Sex: Female

DRUGS (1)
  1. LYRICA [Suspect]
     Active Substance: PREGABALIN
     Dosage: 75 MG, UNK

REACTIONS (11)
  - Drug intolerance [Unknown]
  - Gingival pain [Unknown]
  - Flatulence [Unknown]
  - Dry eye [Unknown]
  - Feeling abnormal [Unknown]
  - Somnolence [Unknown]
  - Oropharyngeal pain [Unknown]
  - Sedation [Unknown]
  - Rash [Unknown]
  - Dry mouth [Unknown]
  - Constipation [Unknown]
